FAERS Safety Report 5166565-X (Version None)
Quarter: 2006Q4

REPORT INFORMATION
  Report Type: 
  Country: None (occurrence: None)
  Receive Date: 20061129
  Receipt Date: 20061108
  Transmission Date: 20070319
  Serious: Yes (Life-Threatening)
  Sender: FDA-Public Use
  Company Number: E3810-00315-SPO-JP

PATIENT
  Age: 44 Year
  Sex: Female

DRUGS (13)
  1. RABEPRAZOLE SODIUM [Suspect]
     Indication: GASTRIC ULCER
     Dosage: 20 MG, 2 IN 1 D, ORAL
     Route: 048
     Dates: start: 20051227, end: 20060911
  2. CEROCRAL (IFENPRODIL TARTRATE) [Suspect]
     Indication: BACK PAIN
     Dosage: 60 MG, 3 IN 1 D, ORAL
     Route: 048
     Dates: start: 20060908, end: 20060911
  3. OXYCONTIN [Concomitant]
  4. MAGMIT (MAGNESIUM OXIDE) [Concomitant]
  5. YODEL (SENNA) [Concomitant]
  6. ROHIPNOL (FLUNITRAZEPAM) [Concomitant]
  7. FLUNITRAZEPAM (FLUNITRAZEPAM) [Concomitant]
  8. GASMOTIN (MOSAPRIDE CITRATE) [Concomitant]
  9. INDOMETHACIN [Concomitant]
  10. LAXOBERON (SODIUM PICOSULFATE) [Concomitant]
  11. LECICARBON SUPP (EDUCTYL) [Concomitant]
  12. OPSO (MORPHINE HYDROCHLORIDE) [Concomitant]
  13. SEREVENT [Concomitant]

REACTIONS (8)
  - AGRANULOCYTOSIS [None]
  - BACK PAIN [None]
  - CHILLS [None]
  - DISSEMINATED INTRAVASCULAR COAGULATION [None]
  - DRUG INTERACTION [None]
  - ENTEROBACTER INFECTION [None]
  - PYREXIA [None]
  - SEPTIC SHOCK [None]
